FAERS Safety Report 24951749 (Version 2)
Quarter: 2025Q1

REPORT INFORMATION
  Report Type: Spontaneous
  Country: US (occurrence: US)
  Receive Date: 20250210
  Receipt Date: 20250320
  Transmission Date: 20250409
  Serious: No
  Sender: PFIZER
  Company Number: US-PFIZER INC-PV202500014453

PATIENT
  Age: 78 Year
  Sex: Female

DRUGS (5)
  1. INLYTA [Suspect]
     Active Substance: AXITINIB
     Dosage: 2 MG, 2X/DAY (TAB 1MG TAKE 2 TABLETS)
     Route: 048
  2. INLYTA [Suspect]
     Active Substance: AXITINIB
     Dosage: 5 MG, 2X/DAY (TAB 5MG TAKE 1 TABLET)
     Route: 048
  3. INLYTA [Suspect]
     Active Substance: AXITINIB
  4. INLYTA [Suspect]
     Active Substance: AXITINIB
     Dates: start: 2025
  5. KEYTRUDA [Suspect]
     Active Substance: PEMBROLIZUMAB

REACTIONS (9)
  - Blood pressure decreased [Recovered/Resolved]
  - Faeces soft [Unknown]
  - Chest pain [Unknown]
  - Chest discomfort [Unknown]
  - Pain [Unknown]
  - Diarrhoea [Recovered/Resolved]
  - Nausea [Recovered/Resolved]
  - Dizziness [Recovered/Resolved]
  - Asthenia [Recovered/Resolved]

NARRATIVE: CASE EVENT DATE: 20250101
